FAERS Safety Report 19027333 (Version 1)
Quarter: 2021Q1

REPORT INFORMATION
  Report Type: Spontaneous
  Country: IN (occurrence: IN)
  Receive Date: 20210318
  Receipt Date: 20210318
  Transmission Date: 20210420
  Serious: Yes (Hospitalization)
  Sender: FDA-Public Use
  Company Number: IN-PFIZER INC-2021201554

PATIENT
  Age: 46 Year
  Sex: Female

DRUGS (8)
  1. ZOLADEX [Concomitant]
     Active Substance: GOSERELIN ACETATE
     Dosage: 10.8 MG STAT AND TO REPEAT EVERY 3 MONTHS
     Route: 030
  2. SHELCAL HD [Concomitant]
     Active Substance: CALCIUM CARBONATE\CHOLECALCIFEROL
     Dosage: UNK, 1X/DAY
  3. CREMAFFIN [Concomitant]
     Dosage: 2 TEASPOONS, 1X/DAY, AT BEDTIME
     Route: 048
  4. DENOSUMAB [Concomitant]
     Active Substance: DENOSUMAB
     Dosage: 120 MG, STAT
     Route: 058
  5. PALBACE [Suspect]
     Active Substance: PALBOCICLIB
     Indication: BREAST CANCER METASTATIC
     Dosage: 125 MG, ONCE PER DAY, CYCLIC, DAY 1?21
     Route: 048
     Dates: start: 20210216
  6. LETROZOLE. [Concomitant]
     Active Substance: LETROZOLE
     Dosage: 2.5 MG, 1X/DAY
  7. RAZO D [Concomitant]
     Dosage: UNK UNK, 1X/DAY
  8. ULTRACET [Concomitant]
     Active Substance: ACETAMINOPHEN\TRAMADOL HYDROCHLORIDE
     Dosage: UNK, AS NEEDED MAX 3 TABS PER DAY

REACTIONS (1)
  - Peripheral swelling [Unknown]
